FAERS Safety Report 6007742-5 (Version None)
Quarter: 2008Q4

REPORT INFORMATION
  Report Type: 
  Country: None (occurrence: None)
  Receive Date: 20081217
  Receipt Date: 20080527
  Transmission Date: 20090506
  Serious: No
  Sender: FDA-Public Use
  Company Number: US-ASTRAZENECA-2008UW10728

PATIENT
  Age: 62 Year
  Sex: Female

DRUGS (3)
  1. CRESTOR [Suspect]
     Route: 048
     Dates: start: 20080523
  2. SINGULAIR [Concomitant]
  3. ASPIRIN [Concomitant]

REACTIONS (1)
  - SOMNOLENCE [None]
